FAERS Safety Report 6792026-8 (Version None)
Quarter: 2010Q2

REPORT INFORMATION
  Report Type: 
  Country: None (occurrence: None)
  Receive Date: 20100624
  Receipt Date: 20080815
  Transmission Date: 20101027
  Serious: No
  Sender: FDA-Public Use
  Company Number: US-PFIZER INC-2008059502

PATIENT
  Sex: Male
  Weight: 127.01 kg

DRUGS (3)
  1. CADUET [Suspect]
     Indication: HYPERTENSION
     Dosage: 5/20 MG
     Route: 048
     Dates: start: 20070517
  2. CADUET [Suspect]
     Indication: BLOOD CHOLESTEROL INCREASED
  3. ATACAND [Concomitant]

REACTIONS (1)
  - BLOOD THYROID STIMULATING HORMONE DECREASED [None]
